FAERS Safety Report 10715122 (Version 1)
Quarter: 2015Q1

REPORT INFORMATION
  Report Type: Report from Study
  Country: US (occurrence: US)
  Receive Date: 20150115
  Receipt Date: 20150115
  Transmission Date: 20150721
  Serious: Yes (Other)
  Sender: FDA-Public Use
  Company Number: US-AMGEN-USASL2015003118

PATIENT
  Age: 67 Year
  Sex: Female
  Weight: 100.8 kg

DRUGS (15)
  1. IRON                               /00023503/ [Concomitant]
     Active Substance: IRON
     Indication: HAEMATOCRIT ABNORMAL
  2. LOTENSIN [Concomitant]
     Active Substance: BENAZEPRIL HYDROCHLORIDE
     Dosage: 20 MG, TAKE 1 TABLET BY MOUTH DAILY
     Route: 048
     Dates: start: 20140306
  3. PROCRIT [Suspect]
     Active Substance: ERYTHROPOIETIN
     Indication: MYELODYSPLASTIC SYNDROME
     Dosage: 40,000 UNIT/ML, EVERY 3 WEEKS
     Route: 058
  4. PRADAXA [Suspect]
     Active Substance: DABIGATRAN ETEXILATE MESYLATE
     Indication: PRODUCT USED FOR UNKNOWN INDICATION
     Dosage: 150 MG, TWICE A DAY
     Route: 048
     Dates: start: 20140318
  5. NEURONTIN [Concomitant]
     Active Substance: GABAPENTIN
     Dosage: 300 MG, TAKE 2 TABS BID X 1 WEEK, THEN 2 TABS TID
     Route: 048
     Dates: start: 20140708
  6. ULTRAM [Concomitant]
     Active Substance: TRAMADOL HYDROCHLORIDE
     Indication: PAIN
     Dosage: 50 MG, TAKE 1 TABLET BY MOUTH 2 TIMES DAILY AS NEEDED
     Route: 048
     Dates: start: 20140306
  7. XYLOCAINE [Concomitant]
     Active Substance: LIDOCAINE HYDROCHLORIDE
     Dosage: 10 ML, PRN
     Route: 048
     Dates: start: 20121130
  8. PROCRIT [Suspect]
     Active Substance: ERYTHROPOIETIN
     Indication: ANAEMIA
  9. DICLOFENAC SODIUM. [Concomitant]
     Active Substance: DICLOFENAC SODIUM
     Dosage: 4 MG, 4 TIMES DAILY AS NEEDED
     Route: 062
     Dates: start: 20140130
  10. HYDRODIURIL [Concomitant]
     Active Substance: HYDROCHLOROTHIAZIDE
     Dosage: 25 MG, TAKE 1 TABLET BY MOUTH DAILY
     Route: 048
     Dates: start: 20140306
  11. GLUCOPHAGE [Concomitant]
     Active Substance: METFORMIN HYDROCHLORIDE
     Dosage: 850 MG, TAKE 1 TABLET BY MOUTH 2 TIMES DAILY WITH MEAL
     Route: 048
     Dates: start: 20140306
  12. ZANTAC [Concomitant]
     Active Substance: RANITIDINE HYDROCHLORIDE
     Dosage: 300 MG, TAKE 1 TABLET BY MOUTH NIGHTLY
     Route: 048
     Dates: start: 20140306
  13. PLAVIX [Concomitant]
     Active Substance: CLOPIDOGREL BISULFATE
     Dosage: 75 MG, TAKE 1 TABLET BY MOUTH EVERY DAY
     Route: 048
     Dates: start: 20140526
  14. IRON                               /00023503/ [Concomitant]
     Active Substance: IRON
     Indication: HAEMOGLOBIN ABNORMAL
     Dosage: 325 (65 FE) MG, TAKE 1 TABKET BY MOUTH DAILY
     Route: 048
  15. MEVACOR [Concomitant]
     Active Substance: LOVASTATIN
     Dosage: 20 MG, TAKE 1 TABLET BY MOUTH DAILY
     Route: 048
     Dates: start: 20140306

REACTIONS (20)
  - Cholecystectomy [Unknown]
  - Diabetic nephropathy [Not Recovered/Not Resolved]
  - Arthritis [Unknown]
  - Contusion [Unknown]
  - Diverticulum [Unknown]
  - Large intestine polyp [Unknown]
  - Diabetic vascular disorder [Not Recovered/Not Resolved]
  - Cataract diabetic [Not Recovered/Not Resolved]
  - Fracture [Unknown]
  - Hypercholesterolaemia [Unknown]
  - Hypertensive heart disease [Not Recovered/Not Resolved]
  - Haemoglobin abnormal [Unknown]
  - Haematocrit abnormal [Unknown]
  - Cataract [Not Recovered/Not Resolved]
  - Arthralgia [Unknown]
  - Hiatus hernia [Unknown]
  - Aortic arteriosclerosis [Not Recovered/Not Resolved]
  - Strabismus [Unknown]
  - Rectal haemorrhage [Unknown]
  - Blood creatinine abnormal [Unknown]

NARRATIVE: CASE EVENT DATE: 20131206
